FAERS Safety Report 15328162 (Version 1)
Quarter: 2018Q3

REPORT INFORMATION
  Report Type: Spontaneous
  Country: US (occurrence: US)
  Receive Date: 20180828
  Receipt Date: 20180828
  Transmission Date: 20181010
  Serious: No
  Sender: FDA-Public Use
  Company Number: US-ASTRAZENECA-2018SE99924

PATIENT
  Age: 1217 Day
  Sex: Female
  Weight: 23.6 kg

DRUGS (1)
  1. FASENRA [Suspect]
     Active Substance: BENRALIZUMAB
     Indication: ASTHMA
     Dosage: EVERY 4 WEEKS FOR THE FIRST 3 DOSES, FOLLOWED BY ONCE EVERY 8 WEEKS
     Route: 058
     Dates: start: 20180716

REACTIONS (3)
  - Nasal congestion [Not Recovered/Not Resolved]
  - Nasal inflammation [Unknown]
  - Maternal exposure during breast feeding [Unknown]

NARRATIVE: CASE EVENT DATE: 20180718
